FAERS Safety Report 7578849-6 (Version None)
Quarter: 2011Q2

REPORT INFORMATION
  Report Type: 
  Country: None (occurrence: None)
  Receive Date: 20110628
  Receipt Date: 20110627
  Transmission Date: 20111010
  Serious: Yes (Other)
  Sender: FDA-Public Use
  Company Number: US-UCBSA-036095

PATIENT
  Sex: Female
  Weight: 105 kg

DRUGS (4)
  1. CARVEDILOL [Concomitant]
     Indication: HYPERTENSION
     Route: 048
     Dates: start: 20070101
  2. LEFLUNOMIDE [Concomitant]
     Indication: RHEUMATOID ARTHRITIS
     Route: 048
     Dates: start: 20110101
  3. CIMZIA [Suspect]
     Indication: RHEUMATOID ARTHRITIS
     Route: 058
     Dates: start: 20110501, end: 20110501
  4. LISINOPRIL [Concomitant]
     Indication: HYPERTENSION
     Route: 048
     Dates: start: 20050101

REACTIONS (1)
  - PUSTULAR PSORIASIS [None]
